FAERS Safety Report 20216261 (Version 1)
Quarter: 2021Q4

REPORT INFORMATION
  Report Type: Report from Study
  Country: BR (occurrence: BR)
  Receive Date: 20211222
  Receipt Date: 20211222
  Transmission Date: 20220303
  Serious: Yes (Other)
  Sender: FDA-Public Use
  Company Number: BR-SHIRE-BR201944624

PATIENT
  Sex: Male
  Weight: 76 kg

DRUGS (18)
  1. HEMO-8R [Suspect]
     Active Substance: ANTIHEMOPHILIC FACTOR, HUMAN RECOMBINANT
     Indication: Factor VIII deficiency
     Dosage: 8000 INTERNATIONAL UNIT, 3/WEEK
     Route: 042
     Dates: start: 20121106
  2. HEMO-8R [Suspect]
     Active Substance: ANTIHEMOPHILIC FACTOR, HUMAN RECOMBINANT
     Dosage: 8000 INTERNATIONAL UNIT, 6 TIMES A WEEK
     Route: 042
     Dates: start: 20191213
  3. HEMO-8R [Suspect]
     Active Substance: ANTIHEMOPHILIC FACTOR, HUMAN RECOMBINANT
     Dosage: 8000 INTERNATIONAL UNIT, 6 TIMES A WEEK
     Route: 042
     Dates: start: 20200125
  4. HEMO-8R [Suspect]
     Active Substance: ANTIHEMOPHILIC FACTOR, HUMAN RECOMBINANT
     Dosage: 7000 INTERNATIONAL UNIT,WHEN HAS LESIONS AND BRUISES DUE TO THE HEMOPHILIA
     Route: 065
  5. FEIBA NF [Suspect]
     Active Substance: ANTI-INHIBITOR COAGULANT COMPLEX
     Indication: Factor VIII deficiency
     Dosage: 7000 INTERNATIONAL UNIT, 3X A WEEK
     Route: 042
     Dates: start: 20121106
  6. FEIBA NF [Suspect]
     Active Substance: ANTI-INHIBITOR COAGULANT COMPLEX
     Dosage: 7000 INTERNATIONAL UNIT, 3X A WEEK
     Route: 042
     Dates: start: 20200124
  7. FEIBA NF [Suspect]
     Active Substance: ANTI-INHIBITOR COAGULANT COMPLEX
     Dosage: UNK
     Route: 042
     Dates: start: 20200204
  8. FEIBA NF [Suspect]
     Active Substance: ANTI-INHIBITOR COAGULANT COMPLEX
     Dosage: 7000 INTERNATIONAL UNIT
     Route: 042
     Dates: start: 20200403
  9. FEIBA NF [Suspect]
     Active Substance: ANTI-INHIBITOR COAGULANT COMPLEX
     Dosage: 7000 INTERNATIONAL UNIT, 3X A WEEK
     Route: 042
     Dates: start: 20121106, end: 20211122
  10. COAGULATION FACTOR VIIA RECOMBINANT HUMAN [Suspect]
     Active Substance: COAGULATION FACTOR VIIA RECOMBINANT HUMAN
     Indication: Factor VIII deficiency
     Dosage: 7000 INTERNATIONAL UNIT
     Route: 065
  11. DIAPYRON [Concomitant]
     Indication: Pain
     Dosage: UNK
     Route: 065
  12. DIAPYRON [Concomitant]
     Indication: Arthralgia
  13. ACETAMINOPHEN [Concomitant]
     Active Substance: ACETAMINOPHEN
     Indication: Pain
     Dosage: HE ONLY USES WHEN HE HAS BODY ACHE
     Route: 065
  14. ACETAMINOPHEN [Concomitant]
     Active Substance: ACETAMINOPHEN
     Indication: Arthralgia
  15. OMEPRAZOLE [Concomitant]
     Active Substance: OMEPRAZOLE
     Indication: Abdominal pain upper
  16. DIPYRONE [Concomitant]
     Active Substance: DIPYRONE
     Indication: Pain
  17. BESILAPIN [Concomitant]
     Indication: Hypertension
     Dosage: 5 MILLIGRAM, QD
  18. HYDROCHLOROTHIAZIDE [Concomitant]
     Active Substance: HYDROCHLOROTHIAZIDE
     Indication: Hypertension
     Dosage: 2.5 MILLIGRAM, QD

REACTIONS (3)
  - Factor VIII inhibition [Unknown]
  - Weight decreased [Not Recovered/Not Resolved]
  - Product availability issue [Unknown]
